FAERS Safety Report 24574905 (Version 2)
Quarter: 2024Q4

REPORT INFORMATION
  Report Type: Spontaneous
  Country: TW (occurrence: TW)
  Receive Date: 20241104
  Receipt Date: 20241126
  Transmission Date: 20250114
  Serious: Yes (Hospitalization, Other)
  Sender: CELLTRION
  Company Number: TW-CELLTRION INC.-2024TW026655

PATIENT

DRUGS (5)
  1. INFLIXIMAB [Suspect]
     Active Substance: INFLIXIMAB
     Indication: Rheumatoid arthritis
     Dosage: 300 MG EVERY 8 WEEKS
     Route: 042
     Dates: start: 20221017, end: 20240830
  2. SULFASALAZINE [Concomitant]
     Active Substance: SULFASALAZINE
     Dosage: 1 G/TAB/DAY
  3. NICAMETATE CITRATE [Concomitant]
     Active Substance: NICAMETATE CITRATE
     Dosage: 50 MG/TAB/DAY
  4. ACETAMINOPHEN\TRAMADOL [Concomitant]
     Active Substance: ACETAMINOPHEN\TRAMADOL
     Dosage: TRAMADOL 37.5 MG + ACETAMINOFEN 325 MG/DAY
  5. ETORICOXIB [Concomitant]
     Active Substance: ETORICOXIB
     Dosage: 60 MG/TAB/DAY

REACTIONS (2)
  - Hypopharyngeal cancer stage IV [Unknown]
  - Intentional product use issue [Unknown]

NARRATIVE: CASE EVENT DATE: 20241017
